FAERS Safety Report 15697929 (Version 2)
Quarter: 2018Q4

REPORT INFORMATION
  Report Type: Spontaneous
  Country: IT (occurrence: IT)
  Receive Date: 20181207
  Receipt Date: 20181213
  Transmission Date: 20190205
  Serious: Yes (Life-Threatening, Hospitalization, Other)
  Sender: FDA-Public Use
  Company Number: IT-PFIZER INC-2018506377

PATIENT
  Age: 83 Year
  Sex: Female

DRUGS (10)
  1. CONGESCOR [Concomitant]
     Active Substance: BISOPROLOL
     Indication: MYOCARDIAL ISCHAEMIA
     Dosage: 1.25 MG, DAILY
     Route: 048
     Dates: start: 20070228, end: 20070426
  2. RAMIPRIL. [Interacting]
     Active Substance: RAMIPRIL
     Indication: MYOCARDIAL ISCHAEMIA
  3. LASIX [Interacting]
     Active Substance: FUROSEMIDE
     Indication: MYOCARDIAL ISCHAEMIA
     Dosage: 25 MG, DAILY
     Route: 048
     Dates: start: 20070228, end: 20070426
  4. DELTACORTENE [Concomitant]
     Active Substance: PREDNISONE
     Indication: MYOCARDIAL ISCHAEMIA
     Dosage: 12.5 MG, 1X/DAY
     Route: 048
     Dates: start: 20070228, end: 20070426
  5. LUVION (POTASSIUM CANRENOATE) [Interacting]
     Active Substance: CANRENOATE POTASSIUM
     Indication: MYOCARDIAL ISCHAEMIA
     Dosage: 50 MG, ALTERNATE DAY (50 MG EVERY OTHER DAY)
     Route: 048
     Dates: start: 20070201, end: 20070426
  6. LANOXIN [Suspect]
     Active Substance: DIGOXIN
     Indication: MYOCARDIAL ISCHAEMIA
  7. INDOBUFENE EG [Concomitant]
     Indication: MYOCARDIAL ISCHAEMIA
     Dosage: 400 MG, DAILY
     Route: 048
     Dates: start: 20070228, end: 20070426
  8. RAMIPRIL. [Suspect]
     Active Substance: RAMIPRIL
     Indication: MYOCARDIAL INFARCTION
     Dosage: 2.5 MG, DAILY
     Route: 048
     Dates: start: 20070228, end: 20070426
  9. ANTRA [OMEPRAZOLE] [Concomitant]
     Indication: HYPERCHLORHYDRIA
     Dosage: 210 MG, DAILY
     Route: 048
     Dates: start: 20070228, end: 20070426
  10. LANOXIN [Suspect]
     Active Substance: DIGOXIN
     Indication: MYOCARDIAL INFARCTION
     Dosage: 0.12 MG, DAILY
     Route: 048
     Dates: start: 20070228, end: 20070426

REACTIONS (5)
  - Bradycardia [Recovering/Resolving]
  - Drug interaction [Unknown]
  - Acute kidney injury [Recovering/Resolving]
  - Hypovolaemic shock [Not Recovered/Not Resolved]
  - Toxicity to various agents [Recovering/Resolving]

NARRATIVE: CASE EVENT DATE: 20070426
